FAERS Safety Report 5854756-1 (Version None)
Quarter: 2008Q3

REPORT INFORMATION
  Report Type: 
  Country: None (occurrence: None)
  Receive Date: 20080822
  Receipt Date: 20080812
  Transmission Date: 20090109
  Serious: Yes (Other)
  Sender: FDA-Public Use
  Company Number: JP-PFIZER INC-2008068103

PATIENT
  Age: 79 Year
  Sex: Male

DRUGS (1)
  1. DIFLUCAN [Suspect]

REACTIONS (1)
  - ARRHYTHMIA [None]
